FAERS Safety Report 7880132-6 (Version None)
Quarter: 2011Q4

REPORT INFORMATION
  Report Type: 
  Country: None (occurrence: None)
  Receive Date: 20111101
  Receipt Date: 20111021
  Transmission Date: 20120403
  Serious: Yes (Hospitalization, Other)
  Sender: FDA-Public Use
  Company Number: US-BAYER-2011-050472

PATIENT
  Age: 15 Year
  Sex: Female
  Weight: 81.633 kg

DRUGS (9)
  1. TRAZODONE HYDROCHLORIDE [Concomitant]
     Dosage: 50 MG, UNK
     Route: 048
     Dates: start: 20091110
  2. DOXYCYCLINE [Concomitant]
  3. ABILIFY [Concomitant]
     Dosage: 20 MG, UNK
     Route: 048
     Dates: start: 20091110
  4. LITHIUM CARBONATE [Concomitant]
     Dosage: 300 MG, UNK
     Route: 048
     Dates: start: 20091110
  5. FLAGYL [Concomitant]
  6. YAZ [Suspect]
     Dosage: UNK
     Dates: start: 20080101, end: 20100101
  7. SUPRAX [Concomitant]
     Dosage: 400 MG, UNK
     Route: 048
     Dates: start: 20091106
  8. LAMICTAL [Concomitant]
  9. LAMOTRIGINE [Concomitant]

REACTIONS (5)
  - CHOLECYSTITIS CHRONIC [None]
  - CHOLECYSTECTOMY [None]
  - INJURY [None]
  - PAIN [None]
  - SCAR [None]
